FAERS Safety Report 9393236 (Version 1)
Quarter: 2013Q3

REPORT INFORMATION
  Report Type: Report from Study
  Country: US (occurrence: US)
  Receive Date: 20130710
  Receipt Date: 20130710
  Transmission Date: 20140515
  Serious: Yes (Hospitalization)
  Sender: FDA-Public Use
  Company Number: PHEH2013US013155

PATIENT
  Sex: Male
  Weight: 79.82 kg

DRUGS (4)
  1. AFINITOR [Suspect]
     Indication: NEOPLASM
     Dosage: 10 MG, QD
     Route: 048
     Dates: start: 201304
  2. SANDOSTATIN [Concomitant]
     Indication: NEOPLASM
     Dosage: UNK
     Route: 030
     Dates: start: 20130526
  3. DILAUDID [Concomitant]
  4. MORINOL [Concomitant]
     Dosage: UNK
     Dates: start: 20130610

REACTIONS (5)
  - Ascites [Unknown]
  - Eating disorder [Unknown]
  - Dizziness [Unknown]
  - Vomiting [Unknown]
  - Nausea [Unknown]
